FAERS Safety Report 13014852 (Version 4)
Quarter: 2017Q1

REPORT INFORMATION
  Report Type: Report from Study
  Country: US (occurrence: US)
  Receive Date: 20161209
  Receipt Date: 20170111
  Transmission Date: 20170428
  Serious: Yes (Hospitalization, Other)
  Sender: FDA-Public Use
  Company Number: US-GILEAD-2016-0242447

PATIENT
  Age: 64 Year
  Sex: Female

DRUGS (2)
  1. DAKLINZA [Concomitant]
     Active Substance: DACLATASVIR
     Indication: HEPATITIS C
     Dosage: 60 MG, UNK
     Route: 048
     Dates: start: 20161028, end: 20161213
  2. SOFOSBUVIR [Suspect]
     Active Substance: SOFOSBUVIR
     Indication: CHRONIC HEPATITIS C
     Dosage: 400 MG, QD
     Route: 048
     Dates: start: 20161028, end: 20161213

REACTIONS (35)
  - Small intestinal obstruction [Unknown]
  - Dyspnoea [Unknown]
  - Skin exfoliation [Not Recovered/Not Resolved]
  - Pharyngeal oedema [Unknown]
  - Pain [Not Recovered/Not Resolved]
  - Confusional state [Unknown]
  - Blood pressure increased [Unknown]
  - Peripheral swelling [Unknown]
  - Intra-abdominal fluid collection [Unknown]
  - Pruritus [Not Recovered/Not Resolved]
  - Lip exfoliation [Not Recovered/Not Resolved]
  - Constipation [Unknown]
  - Abdominal distension [Not Recovered/Not Resolved]
  - Unevaluable event [Unknown]
  - Vision blurred [Unknown]
  - Hypoaesthesia [Unknown]
  - Memory impairment [Unknown]
  - Colour blindness [Unknown]
  - Blood sodium decreased [Unknown]
  - Headache [Not Recovered/Not Resolved]
  - Hot flush [Unknown]
  - Hepatic pain [Not Recovered/Not Resolved]
  - Dry mouth [Unknown]
  - Night sweats [Unknown]
  - Fatigue [Unknown]
  - Migraine [Unknown]
  - Nausea [Unknown]
  - Hypertension [Unknown]
  - Malaise [Unknown]
  - Neurological symptom [Unknown]
  - Weight increased [Unknown]
  - Urticaria [Unknown]
  - Volvulus [Not Recovered/Not Resolved]
  - Asthenia [Unknown]
  - Rash generalised [Unknown]
